FAERS Safety Report 24209765 (Version 1)
Quarter: 2024Q3

REPORT INFORMATION
  Report Type: Spontaneous
  Country: US (occurrence: None)
  Receive Date: 20240813
  Receipt Date: 20240813
  Transmission Date: 20241017
  Serious: Yes (Life-Threatening, Hospitalization, Other)
  Sender: Public
  Company Number: None

PATIENT
  Age: 45 Year
  Sex: Female
  Weight: 59 kg

DRUGS (1)
  1. ZEPOSIA [Suspect]
     Active Substance: OZANIMOD HYDROCHLORIDE
     Indication: Multiple sclerosis
     Dosage: OTHER QUANTITY : 0.92MG;?FREQUENCY : DAILY;?
     Route: 048
     Dates: start: 202309, end: 20240805

REACTIONS (2)
  - Herpes zoster disseminated [None]
  - Therapy interrupted [None]

NARRATIVE: CASE EVENT DATE: 20240805
